FAERS Safety Report 9438113 (Version 1)
Quarter: 2013Q3

REPORT INFORMATION
  Report Type: Spontaneous
  Country: US (occurrence: US)
  Receive Date: 20130802
  Receipt Date: 20130802
  Transmission Date: 20140515
  Serious: No
  Sender: FDA-Public Use
  Company Number: US-BRISTOL-MYERS SQUIBB COMPANY-16892952

PATIENT
  Age: 81 Year
  Sex: Male
  Weight: 86.17 kg

DRUGS (4)
  1. WARFARIN SODIUM [Suspect]
     Indication: KNEE OPERATION
     Dosage: SEP12 DOSE INCD TO 2 TABS OF 2MG PER DAY,4MG
     Dates: start: 201207
  2. CRESTOR [Suspect]
  3. TOPROL [Concomitant]
  4. PROSCAR [Concomitant]
     Dosage: STOPPED A MONTH AGO

REACTIONS (3)
  - Abnormal dreams [Unknown]
  - Muscular weakness [Not Recovered/Not Resolved]
  - Hypoaesthesia [Unknown]
